FAERS Safety Report 6338529-1 (Version None)
Quarter: 2009Q3

REPORT INFORMATION
  Report Type: 
  Country: None (occurrence: None)
  Receive Date: 20090901
  Receipt Date: 20090818
  Transmission Date: 20100115
  Serious: Yes (Hospitalization)
  Sender: FDA-Public Use
  Company Number: 2009SP020903

PATIENT
  Age: 44 Year
  Sex: Female
  Weight: 65 kg

DRUGS (4)
  1. REMERON [Suspect]
     Indication: DEPRESSION
     Dosage: 15 MG; QD; PO
     Route: 048
     Dates: start: 20080910, end: 20080930
  2. PREDNISON (PREDNISONE) [Concomitant]
  3. TILUR [Concomitant]
  4. CALCIMAGON [Concomitant]

REACTIONS (7)
  - ASTHENIA [None]
  - ATAXIA [None]
  - FATIGUE [None]
  - GAIT DISTURBANCE [None]
  - MYOCLONUS [None]
  - PAIN IN EXTREMITY [None]
  - WEIGHT DECREASED [None]
